FAERS Safety Report 21083619 (Version 1)
Quarter: 2022Q3

REPORT INFORMATION
  Report Type: Spontaneous
  Country: RU (occurrence: RU)
  Receive Date: 20220714
  Receipt Date: 20220714
  Transmission Date: 20221026
  Serious: Yes (Death, Hospitalization)
  Sender: FDA-Public Use
  Company Number: RU-TEVA-2022-RU-2053685

PATIENT
  Age: 3 Year
  Sex: Male

DRUGS (6)
  1. CARBOPLATIN [Suspect]
     Active Substance: CARBOPLATIN
     Indication: Retinoblastoma
     Dosage: RECEIVED 5 COURSES
     Route: 065
  2. ETOPOSIDE [Suspect]
     Active Substance: ETOPOSIDE
     Indication: Retinoblastoma
     Dosage: RECEIVED 5 COURSES
     Route: 065
  3. METHOTREXATE [Suspect]
     Active Substance: METHOTREXATE
     Indication: Retinoblastoma
     Dosage: RECEIVED 5 COURSES
     Route: 037
  4. CYCLOPHOSPHAMIDE [Suspect]
     Active Substance: CYCLOPHOSPHAMIDE
     Indication: Retinoblastoma
     Dosage: RECEIVED 5 COURSES
     Route: 065
  5. PREDNISOLONE [Suspect]
     Active Substance: PREDNISOLONE
     Indication: Retinoblastoma
     Dosage: RECEIVED 5 COURSES
     Route: 037
  6. THIOTEPA [Suspect]
     Active Substance: THIOTEPA
     Indication: Retinoblastoma
     Dosage: RECEIVED 5 COURSES
     Route: 037

REACTIONS (7)
  - Drug ineffective [Fatal]
  - Stomatitis [Recovering/Resolving]
  - Neutropenic colitis [Recovering/Resolving]
  - Decreased appetite [Recovering/Resolving]
  - Nausea [Recovering/Resolving]
  - Vomiting [Recovering/Resolving]
  - Febrile neutropenia [Recovering/Resolving]
